FAERS Safety Report 17132069 (Version 3)
Quarter: 2021Q3

REPORT INFORMATION
  Report Type: Spontaneous
  Country: US (occurrence: US)
  Receive Date: 20191210
  Receipt Date: 20210715
  Transmission Date: 20211014
  Serious: Yes (Death, Hospitalization, Other)
  Sender: FDA-Public Use
  Company Number: US-TEVA-2019-US-1150096

PATIENT
  Age: 70 Year
  Sex: Male

DRUGS (20)
  1. ASPIRIN. [Concomitant]
     Active Substance: ASPIRIN
     Indication: PAIN
     Dosage: 81 MILLIGRAM DAILY;
     Route: 048
  2. FISH OIL [Concomitant]
     Active Substance: FISH OIL
     Indication: CARDIOVASCULAR EVENT PROPHYLAXIS
     Dosage: 2 DOSAGE FORMS DAILY; 120 MG?180 MG?60 MG?1200MG CPDR (OMEGA?3S?DHA?EPA?FISH OIL)
     Route: 048
  3. AMLODIPINE W/VALSARTAN TEVA [Suspect]
     Active Substance: AMLODIPINE\VALSARTAN
     Indication: HYPERTENSION
     Dosage: 1 DOSAGE FORMS DAILY; 5/320MG
     Route: 048
  4. CEFDINIR. [Concomitant]
     Active Substance: CEFDINIR
     Indication: INFECTION
     Route: 048
     Dates: start: 2014
  5. DILTIAZEM 180MG MYLAN [Concomitant]
     Dosage: 180 MILLIGRAM DAILY;
     Route: 048
  6. CLOBETASOL 0.05% [Concomitant]
     Active Substance: CLOBETASOL
     Dosage: 2?3 TIMES A DAY
     Route: 061
  7. MUPIROCIN 2% [Concomitant]
     Active Substance: MUPIROCIN
     Dosage: ONCE  A DAY
     Route: 061
  8. VALSARTAN 320MG ACTAVIS [Suspect]
     Active Substance: VALSARTAN
     Indication: HYPERTENSION
     Route: 048
     Dates: start: 20151014, end: 20160204
  9. AMLODIPINE BESYLATE LUPIN [Concomitant]
     Active Substance: AMLODIPINE BESYLATE
     Indication: HYPERTENSION
     Dosage: 5 MILLIGRAM DAILY;
     Route: 048
  10. CLOPIDOGREL [Suspect]
     Active Substance: CLOPIDOGREL BISULFATE
     Indication: CARDIOVASCULAR EVENT PROPHYLAXIS
     Dosage: 75 MILLIGRAM DAILY; NIGHT
     Dates: start: 2017
  11. VALSARTAN 320MG SOLCO [Suspect]
     Active Substance: VALSARTAN
     Indication: HYPERTENSION
     Dosage: 320 MILLIGRAM DAILY;
     Route: 048
     Dates: start: 20160920, end: 20180108
  12. GLUCOSAMINE?CHONDROITIN [Concomitant]
     Active Substance: CHONDROITIN SULFATE (BOVINE)\GLUCOSAMINE SULFATE
     Dosage: 2 DOSAGE FORMS DAILY; 500/400MG
     Route: 048
  13. MELOXICAM. [Concomitant]
     Active Substance: MELOXICAM
     Indication: ARTHRITIS
     Dosage: 15 MILLIGRAM DAILY;
     Route: 048
  14. AMOX?CLAV [Concomitant]
     Active Substance: AMOXICILLIN\CLAVULANATE POTASSIUM
     Indication: PNEUMONIA
     Dosage: 1750 MILLIGRAM DAILY;
     Route: 048
     Dates: start: 2016
  15. LIPITOR [Concomitant]
     Active Substance: ATORVASTATIN CALCIUM
     Dosage: 10 MILLIGRAM DAILY; NIGHT, BED TIME1
     Route: 048
  16. FOSAMAX [Concomitant]
     Active Substance: ALENDRONATE SODIUM
     Indication: OSTEOPOROSIS
  17. ACETAMINOPHEN W/OXYCODONE ACTAVIS [Concomitant]
     Indication: PAIN
     Dosage: 5/325MG, 1 OR 2 TABLETS EVERY 6 HOURS
  18. VALSARTAN 320MG OHMS [Suspect]
     Active Substance: VALSARTAN
     Indication: HYPERTENSION
     Dosage: 320 MILLIGRAM DAILY;
     Route: 048
     Dates: start: 20160920, end: 20180108
  19. TAMSULOSIN ZYDUS [Concomitant]
     Active Substance: TAMSULOSIN
     Indication: URINARY TRACT DISORDER
     Dosage: .4 MILLIGRAM DAILY;
     Route: 048
     Dates: start: 2017
  20. SENNA?S [Concomitant]
     Active Substance: DOCUSATE SODIUM\SENNOSIDES
     Dosage: 4 DOSAGE FORMS DAILY; 8.6/50MG
     Route: 048

REACTIONS (4)
  - Adenocarcinoma gastric [Fatal]
  - Lung cancer metastatic [Not Recovered/Not Resolved]
  - Hypercalcaemia of malignancy [Recovering/Resolving]
  - Hepatic cancer metastatic [Not Recovered/Not Resolved]

NARRATIVE: CASE EVENT DATE: 20171222
